FAERS Safety Report 9213531 (Version 2)
Quarter: 2013Q2

REPORT INFORMATION
  Report Type: Spontaneous
  Country: CO (occurrence: CO)
  Receive Date: 20130405
  Receipt Date: 20130603
  Transmission Date: 20140414
  Serious: Yes (Death)
  Sender: FDA-Public Use
  Company Number: CO-UCBSA-082276

PATIENT
  Age: 67 Year
  Sex: Male

DRUGS (3)
  1. CIMZIA [Suspect]
     Indication: RHEUMATOID ARTHRITIS
     Route: 058
     Dates: start: 20121024, end: 20121110
  2. PREDNISOLONE [Concomitant]
     Dosage: 5MG
  3. METHOTREXATE [Concomitant]
     Dosage: 2.5MG

REACTIONS (1)
  - Cardio-respiratory arrest [Fatal]
